FAERS Safety Report 10010077 (Version 2)
Quarter: 2014Q1

REPORT INFORMATION
  Report Type: Spontaneous
  Country: US (occurrence: US)
  Receive Date: 20140312
  Receipt Date: 20140312
  Transmission Date: 20141002
  Serious: Yes (Hospitalization)
  Sender: FDA-Public Use
  Company Number: US-INCYTE CORPORATION-2013IN000712

PATIENT
  Age: 82 Year
  Sex: Female
  Weight: 51.25 kg

DRUGS (11)
  1. JAKAFI [Suspect]
     Indication: MYELOFIBROSIS
     Dosage: 10 MG, BID
     Route: 048
     Dates: start: 20130322
  2. HYDREA [Concomitant]
  3. ALENDRONATE SODIUM [Concomitant]
  4. PRILOSEC [Concomitant]
  5. VITAMIN B12 (CYANOCOBALAMIN AND ANALOGUES) [Concomitant]
  6. CALCIUM [Concomitant]
  7. METOPROLOL [Concomitant]
  8. LEVOTHYROXINE [Concomitant]
  9. ASPIRIN [Concomitant]
     Dosage: 81 MG, QD
  10. VITAMIN D [Concomitant]
  11. IRON [Concomitant]
     Indication: SUPPLEMENTATION THERAPY

REACTIONS (4)
  - Anaemia [Recovering/Resolving]
  - Nausea [Unknown]
  - Local swelling [Unknown]
  - Diarrhoea [Unknown]
